FAERS Safety Report 6114425-X (Version None)
Quarter: 2009Q1

REPORT INFORMATION
  Report Type: 
  Country: None (occurrence: None)
  Receive Date: 20090313
  Receipt Date: 20090311
  Transmission Date: 20090719
  Serious: Yes (Other)
  Sender: FDA-Public Use
  Company Number: DE-BAYER-200915213GPV

PATIENT
  Age: 34 Year
  Sex: Male
  Weight: 88 kg

DRUGS (3)
  1. BETAFERON [Suspect]
     Indication: DRUG USE FOR UNKNOWN INDICATION
     Route: 058
     Dates: start: 20080902, end: 20080906
  2. BETAFERON [Suspect]
     Route: 058
     Dates: start: 20080908, end: 20080912
  3. BETAFERON [Suspect]
     Dosage: AS USED: 0.75 ML
     Route: 058
     Dates: start: 20080914, end: 20080918

REACTIONS (4)
  - ALANINE AMINOTRANSFERASE INCREASED [None]
  - ASPARTATE AMINOTRANSFERASE INCREASED [None]
  - BLOOD LACTATE DEHYDROGENASE INCREASED [None]
  - GAMMA-GLUTAMYLTRANSFERASE INCREASED [None]
